APPROVED DRUG PRODUCT: DOVONEX
Active Ingredient: CALCIPOTRIENE
Strength: 0.005%
Dosage Form/Route: CREAM;TOPICAL
Application: N020554 | Product #001 | TE Code: AB
Applicant: LEO PHARMA AS
Approved: Jul 22, 1996 | RLD: Yes | RS: Yes | Type: RX